FAERS Safety Report 8008449-5 (Version None)
Quarter: 2011Q4

REPORT INFORMATION
  Report Type: 
  Country: None (occurrence: None)
  Receive Date: 20111227
  Receipt Date: 20111221
  Transmission Date: 20120403
  Serious: No
  Sender: FDA-Public Use
  Company Number: US-BAYER-2011-123367

PATIENT
  Age: 47 Year
  Sex: Female
  Weight: 99.773 kg

DRUGS (1)
  1. ALEVE (CAPLET) [Suspect]
     Indication: ARTHRITIS
     Dosage: 1 U, QD
     Route: 048
     Dates: start: 20110921

REACTIONS (1)
  - NO ADVERSE EVENT [None]
